FAERS Safety Report 25247804 (Version 1)
Quarter: 2025Q2

REPORT INFORMATION
  Report Type: Report from Study
  Country: US (occurrence: US)
  Receive Date: 20250428
  Receipt Date: 20250428
  Transmission Date: 20250717
  Serious: Yes (Other)
  Sender: ABBVIE
  Company Number: US-ABBVIE-6248755

PATIENT
  Age: 27 Year
  Sex: Male

DRUGS (1)
  1. SKYRIZI [Suspect]
     Active Substance: RISANKIZUMAB-RZAA
     Indication: Crohn^s disease
     Route: 058
     Dates: start: 20240304

REACTIONS (7)
  - Lipoma [Not Recovered/Not Resolved]
  - Pelvic deformity [Unknown]
  - Staphylococcal infection [Recovered/Resolved]
  - Hypoaesthesia [Not Recovered/Not Resolved]
  - Injection site pain [Not Recovered/Not Resolved]
  - Back pain [Unknown]
  - Injection site papule [Not Recovered/Not Resolved]

NARRATIVE: CASE EVENT DATE: 20240101
